FAERS Safety Report 7988674-X (Version None)
Quarter: 2011Q4

REPORT INFORMATION
  Report Type: 
  Country: None (occurrence: None)
  Receive Date: 20111218
  Receipt Date: 20111205
  Transmission Date: 20120403
  Serious: Yes (Life-Threatening, Hospitalization, Other)
  Sender: FDA-Public Use
  Company Number: DK-ELI_LILLY_AND_COMPANY-DK201109006802

PATIENT
  Sex: Male

DRUGS (8)
  1. METOPROLOL SUCCINATE [Concomitant]
  2. DULOXETINE HYDROCHLORIDE [Suspect]
     Indication: DEPRESSION
     Dosage: 30 MG, QD
     Route: 048
  3. DULOXETINE HYDROCHLORIDE [Suspect]
     Dosage: 60 MG, QD
     Route: 048
  4. DULOXETINE HYDROCHLORIDE [Suspect]
     Dosage: 60 MG, UNK
  5. PANTOLOC                           /01263202/ [Concomitant]
  6. ABILIFY [Concomitant]
     Indication: DEPRESSION
     Dosage: 60 MG, UNK
     Route: 048
  7. ABILIFY [Concomitant]
     Dosage: 15 MG, UNK
  8. SIMVASTATIN [Concomitant]
     Dosage: UNK

REACTIONS (6)
  - PNEUMONIA [None]
  - TOXICITY TO VARIOUS AGENTS [None]
  - DECUBITUS ULCER [None]
  - NEUROLEPTIC MALIGNANT SYNDROME [None]
  - PSYCHOTIC DISORDER [None]
  - SUICIDAL IDEATION [None]
